FAERS Safety Report 5012225-5 (Version None)
Quarter: 2006Q2

REPORT INFORMATION
  Report Type: 
  Country: None (occurrence: None)
  Receive Date: 20060524
  Receipt Date: 20060516
  Transmission Date: 20061013
  Serious: Yes (Hospitalization)
  Sender: FDA-Public Use
  Company Number: 2006BI0044597

PATIENT
  Age: 32 Year
  Sex: Female

DRUGS (2)
  1. AVONEX [Suspect]
     Indication: MULTIPLE SCLEROSIS
     Dosage: UNKNOWN
     Route: 065
     Dates: start: 20030201, end: 20060406
  2. LEXAPRO [Concomitant]

REACTIONS (4)
  - DECUBITUS ULCER [None]
  - HEMIPLEGIA [None]
  - IMPAIRED HEALING [None]
  - OSTEOMYELITIS [None]
